FAERS Safety Report 5484552-9 (Version None)
Quarter: 2007Q4

REPORT INFORMATION
  Report Type: 
  Country: None (occurrence: None)
  Receive Date: 20071012
  Receipt Date: 20071002
  Transmission Date: 20080405
  Serious: Yes (Other)
  Sender: FDA-Public Use
  Company Number: US-PFIZER INC-2007083676

PATIENT
  Sex: Female

DRUGS (2)
  1. LYRICA [Suspect]
     Indication: PAIN
  2. ALL OTHER THERAPEUTIC PRODUCTS [Suspect]

REACTIONS (2)
  - DIZZINESS [None]
  - IMPAIRED WORK ABILITY [None]
